FAERS Safety Report 9882337 (Version 2)
Quarter: 2014Q1

REPORT INFORMATION
  Report Type: Report from Study
  Country: AU (occurrence: AU)
  Receive Date: 20140207
  Receipt Date: 20140304
  Transmission Date: 20141002
  Serious: Yes (Disabling, Other)
  Sender: FDA-Public Use
  Company Number: PHHY2014AU014973

PATIENT
  Sex: Female

DRUGS (12)
  1. ACLASTA [Suspect]
     Indication: OSTEOPOROSIS
     Dosage: 5 MG, UNK
     Route: 042
     Dates: start: 20130222
  2. ACIMAX [Concomitant]
     Indication: GASTROOESOPHAGEAL REFLUX DISEASE
     Dosage: 1 DF, IN THE MORNING BEFORE MEALS
  3. ALEPAM [Concomitant]
     Indication: INSOMNIA
     Dosage: 1 DF, BEFORE BED
  4. AMIODARONE [Concomitant]
     Indication: ATRIAL FIBRILLATION
     Dosage: 1 DF, UNK
  5. KENACORT-A 10 [Concomitant]
     Dosage: AS DIRECTED
  6. LIPITOR [Concomitant]
     Dosage: 1 DF, IN THE MORNING
  7. OSTELIN VITAMIN D [Concomitant]
     Indication: OSTEOPOROSIS
     Dosage: 1 DF, UNK
  8. PANADOL OSTEO [Concomitant]
     Indication: OSTEOPOROSIS
     Dosage: 2 DF, TID
  9. PRADAXA [Concomitant]
     Indication: ATRIAL FIBRILLATION
     Dosage: 1 DF, BID
  10. SULFASALAZINE [Concomitant]
     Indication: DRY EYE
     Dosage: 2 DF, BID
  11. SYSTANE [Concomitant]
     Dosage: 0.4 %; 0.3% DOSE INSTIL 1-2 DROPS IN AFFECTED EYE (S) AS NECESSARY OR AS DIRECTED
  12. TENSIG [Concomitant]
     Indication: SUPRAVENTRICULAR TACHYCARDIA
     Dosage: 1 DF, UNK

REACTIONS (2)
  - Hypertension [Not Recovered/Not Resolved]
  - Myocardial ischaemia [Not Recovered/Not Resolved]
